FAERS Safety Report 4448595-6 (Version None)
Quarter: 2004Q3

REPORT INFORMATION
  Report Type: 
  Country: None (occurrence: None)
  Receive Date: 20040909
  Receipt Date: 20040825
  Transmission Date: 20050211
  Serious: Yes (Other)
  Sender: FDA-Public Use
  Company Number: 220003M04DEU

PATIENT
  Age: 15 Year
  Sex: Female
  Weight: 52 kg

DRUGS (4)
  1. SAIZEN [Suspect]
     Indication: TURNER'S SYNDROME
     Dosage: SEE IMAGE
     Dates: start: 20030721, end: 20030821
  2. SAIZEN [Suspect]
     Indication: TURNER'S SYNDROME
     Dosage: SEE IMAGE
     Dates: start: 20030821, end: 20031020
  3. SAIZEN [Suspect]
     Indication: TURNER'S SYNDROME
     Dosage: SEE IMAGE
     Dates: start: 20031020, end: 20040712
  4. SAIZEN [Suspect]
     Indication: TURNER'S SYNDROME
     Dosage: SEE IMAGE
     Dates: start: 20040712, end: 20040816

REACTIONS (1)
  - PITUITARY TUMOUR BENIGN [None]
